FAERS Safety Report 25476524 (Version 1)
Quarter: 2025Q2

REPORT INFORMATION
  Report Type: Spontaneous
  Country: SG (occurrence: SG)
  Receive Date: 20250625
  Receipt Date: 20250625
  Transmission Date: 20250717
  Serious: Yes (Other)
  Sender: BOEHRINGER INGELHEIM
  Company Number: SG-BoehringerIngelheim-2025-BI-078936

PATIENT
  Age: 76 Year
  Sex: Male

DRUGS (1)
  1. EMPAGLIFLOZIN [Suspect]
     Active Substance: EMPAGLIFLOZIN
     Indication: Product used for unknown indication

REACTIONS (1)
  - Pruritus [Unknown]

NARRATIVE: CASE EVENT DATE: 20250101
